FAERS Safety Report 5157588-5 (Version None)
Quarter: 2006Q4

REPORT INFORMATION
  Report Type: 
  Country: None (occurrence: None)
  Receive Date: 20061127
  Receipt Date: 20061027
  Transmission Date: 20070319
  Serious: Yes (Hospitalization)
  Sender: FDA-Public Use
  Company Number: JP-ELI_LILLY_AND_COMPANY-JP200610005233

PATIENT
  Age: 71 Year
  Sex: Female

DRUGS (5)
  1. ALFAROL [Concomitant]
  2. ADALAT [Concomitant]
  3. CARDENALIN [Concomitant]
  4. ELASZYM [Concomitant]
  5. EVISTA [Suspect]
     Indication: OSTEOPOROSIS
     Dosage: 60 MG, DAILY (1/D)
     Route: 048
     Dates: start: 20060127, end: 20061001

REACTIONS (1)
  - MYOCARDIAL INFARCTION [None]
